FAERS Safety Report 6559070-7 (Version None)
Quarter: 2010Q1

REPORT INFORMATION
  Report Type: 
  Country: None (occurrence: None)
  Receive Date: 20100129
  Receipt Date: 20100120
  Transmission Date: 20100710
  Serious: Yes (Hospitalization, Other)
  Sender: FDA-Public Use
  Company Number: BR-ABBOTT-10P-020-0620913-00

PATIENT
  Sex: Female
  Weight: 60 kg

DRUGS (9)
  1. HUMIRA [Suspect]
     Indication: RHEUMATOID ARTHRITIS
     Route: 058
     Dates: start: 20080101
  2. TRAMADOL HYDROCHLORIDE AND ACETAMINOPHEN [Concomitant]
     Indication: PAIN
     Route: 048
  3. METICORTEN [Concomitant]
     Indication: ARTHRALGIA
     Route: 048
     Dates: start: 20010101
  4. ATENLOL [Concomitant]
     Indication: BLOOD PRESSURE
     Route: 048
  5. CLORANA [Concomitant]
     Indication: SWELLING
     Route: 048
  6. AMITRIPTYLINE HCL [Concomitant]
     Indication: ANTIDEPRESSANT THERAPY
     Route: 048
  7. FRONTAL [Concomitant]
     Indication: SLEEP DISORDER THERAPY
     Route: 048
  8. CAPTOPRIL [Concomitant]
     Indication: BLOOD PRESSURE INCREASED
     Route: 048
     Dates: start: 20090101
  9. PARACETAMOL, CODEINE PHOSPHATE (PAIN) [Concomitant]
     Indication: PAIN
     Route: 048
     Dates: start: 20090501

REACTIONS (11)
  - ABDOMINAL PAIN [None]
  - DIZZINESS [None]
  - FALL [None]
  - FATIGUE [None]
  - HIP FRACTURE [None]
  - HYPERSENSITIVITY [None]
  - INFLAMMATION [None]
  - PRURITUS [None]
  - SCIATIC NERVE INJURY [None]
  - SOMNOLENCE [None]
  - SWELLING [None]
